FAERS Safety Report 6445464-7 (Version None)
Quarter: 2009Q4

REPORT INFORMATION
  Report Type: 
  Country: None (occurrence: None)
  Receive Date: 20091118
  Receipt Date: 20091117
  Transmission Date: 20100525
  Serious: Yes (Death, Hospitalization, Other)
  Sender: FDA-Public Use
  Company Number: US-B.I. PHARMACEUTICALS,INC./RIDGEFIELD-2009-BP-12342BP

PATIENT
  Sex: Female

DRUGS (10)
  1. SPIRIVA [Suspect]
     Indication: CHRONIC OBSTRUCTIVE PULMONARY DISEASE
  2. SPIRIVA [Suspect]
     Indication: EMPHYSEMA
  3. ACTONEL [Concomitant]
  4. TOPROL-XL [Concomitant]
  5. LOTREL [Concomitant]
  6. FUROSEMIDE [Concomitant]
  7. THEOPHYLLINE [Concomitant]
  8. EYE DROPS [Concomitant]
  9. ADVAIR DISKUS 100/50 [Concomitant]
  10. COMBIVENT [Concomitant]

REACTIONS (7)
  - DEATH [None]
  - GASTRIC ULCER PERFORATION [None]
  - HAEMORRHAGE [None]
  - HIP FRACTURE [None]
  - PANIC ATTACK [None]
  - RESPIRATORY DISTRESS [None]
  - TACHYCARDIA [None]
